FAERS Safety Report 8087332-3 (Version None)
Quarter: 2012Q1

REPORT INFORMATION
  Report Type: 
  Country: None (occurrence: None)
  Receive Date: 20120128
  Receipt Date: 20110427
  Transmission Date: 20120608
  Serious: No
  Sender: FDA-Public Use
  Company Number: US-ABBOTT-11P-163-0722188-00

PATIENT
  Age: 40 Year
  Sex: Female

DRUGS (3)
  1. WARFARIN SODIUM [Concomitant]
     Dosage: ALL OTHER DAYS
  2. HUMIRA [Suspect]
     Indication: PSORIATIC ARTHROPATHY
     Dates: start: 20110427
  3. WARFARIN SODIUM [Concomitant]
     Indication: PRODUCT USED FOR UNKNOWN INDICATION
     Dosage: MONDAY, WEDNESDAY, FRIDAY

REACTIONS (1)
  - INJECTION SITE NODULE [None]
